FAERS Safety Report 8308661 (Version 3)
Quarter: 2012Q4

REPORT INFORMATION
  Report Type: 
  Country: US (occurrence: US)
  Receive Date: 20111222
  Receipt Date: 20121101
  Transmission Date: 20130627
  Serious: Yes (Death, Hospitalization)
  Sender: FDA-Public Use
  Company Number: PHEH2011US012036

PATIENT
  Age: 78 Year
  Sex: Female

DRUGS (2)
  1. ZOMETA [Suspect]
  2. WATER PILLS [Concomitant]

REACTIONS (6)
  - Death [Fatal]
  - Small cell lung cancer metastatic [Unknown]
  - Pulmonary mass [Unknown]
  - Dyspnoea [Unknown]
  - Asthenia [Unknown]
  - Pain [Unknown]
